FAERS Safety Report 25167049 (Version 1)
Quarter: 2025Q2

REPORT INFORMATION
  Report Type: Spontaneous
  Country: US (occurrence: US)
  Receive Date: 20250407
  Receipt Date: 20250407
  Transmission Date: 20250716
  Serious: Yes (Hospitalization)
  Sender: BAYER
  Company Number: US-BAYER-2025A045640

PATIENT
  Age: 68 Year
  Sex: Male

DRUGS (3)
  1. ASPIRIN [Suspect]
     Active Substance: ASPIRIN
  2. METFORMIN [Suspect]
     Active Substance: METFORMIN HYDROCHLORIDE
     Dosage: 1000 MG, BID
  3. APIXABAN [Suspect]
     Active Substance: APIXABAN

REACTIONS (2)
  - Morel-Lavallee seroma [None]
  - Ecchymosis [None]
